FAERS Safety Report 11588801 (Version 1)
Quarter: 2015Q4

REPORT INFORMATION
  Report Type: Spontaneous
  Country: US (occurrence: US)
  Receive Date: 20151002
  Receipt Date: 20151002
  Transmission Date: 20160304
  Serious: No
  Sender: FDA-Public Use
  Company Number: US-BIOGENIDEC-2015BI131404

PATIENT
  Sex: Male

DRUGS (1)
  1. TYSABRI [Suspect]
     Active Substance: NATALIZUMAB
     Indication: MULTIPLE SCLEROSIS
     Route: 042
     Dates: start: 20140802

REACTIONS (5)
  - Memory impairment [Recovered/Resolved]
  - General physical health deterioration [Unknown]
  - Paraesthesia [Recovered/Resolved]
  - Night blindness [Recovered/Resolved]
  - Fatigue [Recovered/Resolved]
